FAERS Safety Report 23477997 (Version 10)
Quarter: 2025Q1

REPORT INFORMATION
  Report Type: Report from Study
  Country: JP (occurrence: JP)
  Receive Date: 20240204
  Receipt Date: 20250218
  Transmission Date: 20250409
  Serious: Yes (Life-Threatening, Hospitalization, Disabling, Other)
  Sender: TAKEDA
  Company Number: JP-TAKEDA-2024TJP001874

PATIENT
  Age: 12 Year
  Sex: Male
  Weight: 29.9 kg

DRUGS (6)
  1. TEDUGLUTIDE [Suspect]
     Active Substance: TEDUGLUTIDE
     Indication: Short-bowel syndrome
     Dosage: 0.05 MILLIGRAM/KILOGRAM, QD
     Dates: start: 20210810, end: 202401
  2. TEDUGLUTIDE [Suspect]
     Active Substance: TEDUGLUTIDE
  3. TEDUGLUTIDE [Suspect]
     Active Substance: TEDUGLUTIDE
  4. TEDUGLUTIDE [Suspect]
     Active Substance: TEDUGLUTIDE
  5. GLUTAMINE [Concomitant]
     Active Substance: GLUTAMINE
  6. GLUTAMINE [Concomitant]
     Active Substance: GLUTAMINE
     Indication: Short-bowel syndrome

REACTIONS (6)
  - Renal impairment [Recovering/Resolving]
  - Enterocolitis [Recovered/Resolved]
  - Enterocolitis [Recovered/Resolved]
  - Platelet count decreased [Recovered/Resolved]
  - Gastrointestinal stoma complication [Not Recovered/Not Resolved]
  - Abdominal pain [Recovered/Resolved]

NARRATIVE: CASE EVENT DATE: 20210814
